FAERS Safety Report 6425255-3 (Version None)
Quarter: 2009Q4

REPORT INFORMATION
  Report Type: 
  Country: None (occurrence: None)
  Receive Date: 20091103
  Receipt Date: 20091030
  Transmission Date: 20100525
  Serious: Yes (Death, Hospitalization)
  Sender: FDA-Public Use
  Company Number: US-WYE-H11953809

PATIENT
  Sex: Female

DRUGS (3)
  1. PRISTIQ [Suspect]
     Indication: DEPRESSION
     Route: 048
     Dates: start: 20090101
  2. SERTRALINE HCL [Concomitant]
     Dosage: UNKNOWN
  3. PRILOSEC [Concomitant]
     Dosage: PRN

REACTIONS (2)
  - CEREBROVASCULAR ACCIDENT [None]
  - LOSS OF CONSCIOUSNESS [None]
